FAERS Safety Report 5788800-7 (Version None)
Quarter: 2008Q2

REPORT INFORMATION
  Report Type: 
  Country: None (occurrence: None)
  Receive Date: 20080618
  Receipt Date: 20071220
  Transmission Date: 20081010
  Serious: Yes (Other)
  Sender: FDA-Public Use
  Company Number: 200718821US

PATIENT
  Age: 41 Year
  Sex: Male

DRUGS (4)
  1. LANTUS [Suspect]
     Indication: TYPE 1 DIABETES MELLITUS
     Dosage: INJ
     Dates: start: 20050101
  2. PHENYTOIN (DILANTIN /00017401/) [Concomitant]
  3. ANTI-REJECTION DRUGS [Concomitant]
  4. BLOOD PRESSURE MEDICATIONS [Concomitant]

REACTIONS (2)
  - HYPERGLYCAEMIA [None]
  - HYPOGLYCAEMIA [None]
